FAERS Safety Report 25362752 (Version 1)
Quarter: 2025Q2

REPORT INFORMATION
  Report Type: Report from Study
  Country: US (occurrence: US)
  Receive Date: 20250527
  Receipt Date: 20250527
  Transmission Date: 20250716
  Serious: No
  Sender: UCB
  Company Number: US-UCBSA-2025028071

PATIENT
  Sex: Female

DRUGS (1)
  1. ROTIGOTINE [Suspect]
     Active Substance: ROTIGOTINE
     Indication: Restless legs syndrome
     Dosage: 4 MILLIGRAM EVERY 24 HOURS
     Route: 062

REACTIONS (3)
  - Restless legs syndrome [Not Recovered/Not Resolved]
  - Product use issue [Unknown]
  - Product adhesion issue [Unknown]
